FAERS Safety Report 6671170-X (Version None)
Quarter: 2010Q2

REPORT INFORMATION
  Report Type: 
  Country: None (occurrence: None)
  Receive Date: 20100407
  Receipt Date: 20100324
  Transmission Date: 20101027
  Serious: Yes (Life-Threatening, Hospitalization)
  Sender: FDA-Public Use
  Company Number: AU-AMGEN-US399167

PATIENT
  Sex: Female
  Weight: 60 kg

DRUGS (3)
  1. ENBREL [Suspect]
     Indication: RHEUMATOID ARTHRITIS
     Dosage: 50MG ONCE WEEKLY
     Route: 058
     Dates: start: 20080101, end: 20100201
  2. PREDNISOLONE [Concomitant]
     Dosage: 5 MG DAILY
     Route: 048
  3. METHOTREXATE [Concomitant]
     Dosage: 15MG DAILY
     Route: 048

REACTIONS (1)
  - PNEUMOCYSTIS JIROVECI PNEUMONIA [None]
